FAERS Safety Report 19515781 (Version 1)
Quarter: 2021Q3

REPORT INFORMATION
  Report Type: Spontaneous
  Country: US (occurrence: US)
  Receive Date: 20210709
  Receipt Date: 20210709
  Transmission Date: 20211014
  Serious: Yes (Other)
  Sender: FDA-Public Use
  Company Number: US-ASTELLAS-2020US024835

PATIENT
  Age: 50 Year
  Sex: Female

DRUGS (1)
  1. MYRBETRIQ [Suspect]
     Active Substance: MIRABEGRON
     Indication: MICTURITION URGENCY
     Route: 048
     Dates: start: 202007

REACTIONS (4)
  - Micturition urgency [Unknown]
  - Pollakiuria [Unknown]
  - Condition aggravated [Unknown]
  - Urinary retention [Unknown]
